FAERS Safety Report 8427886-8 (Version None)
Quarter: 2012Q2

REPORT INFORMATION
  Report Type: 
  Country: None (occurrence: None)
  Receive Date: 20120611
  Receipt Date: 20120531
  Transmission Date: 20120825
  Serious: Yes (Other)
  Sender: FDA-Public Use
  Company Number: US-ASTRAZENECA-2012SE13389

PATIENT
  Age: 53 Year
  Sex: Female
  Weight: 70.3 kg

DRUGS (20)
  1. TAXOL [Concomitant]
  2. ALOXI [Concomitant]
     Dosage: 0.25
  3. NEULASTA [Concomitant]
  4. COUMADIN [Concomitant]
  5. NEXIUM [Suspect]
     Indication: GASTROOESOPHAGEAL REFLUX DISEASE
     Route: 048
  6. BENADRYL [Concomitant]
  7. ZOFRAN [Concomitant]
  8. ZOMETA [Concomitant]
  9. OXYCODONE HCL AND ACETAMINOPHEN [Concomitant]
     Dosage: 5/325 MG, ONNE OR TWO
  10. AVASTIN [Concomitant]
  11. ATENOLOL [Concomitant]
     Indication: HYPERTENSION
     Route: 048
  12. TRAMADOL HCL [Concomitant]
  13. HELARIUM [Concomitant]
     Dosage: 2.5
  14. TRIAMTERENE AND HYDROCHLOROTHIAZIDE [Concomitant]
     Indication: HYPERTENSION
     Dosage: 37.5 / 25 MG
     Route: 048
  15. STOOL SOFTENER [Concomitant]
  16. FERROUS SULFATE TAB [Concomitant]
     Route: 048
  17. NORVASC [Concomitant]
     Indication: HYPERTENSION
     Route: 048
  18. PEPCID [Concomitant]
  19. GEMZAR [Concomitant]
  20. EFFEXOR [Concomitant]
     Indication: ANTIDEPRESSANT THERAPY
     Route: 048

REACTIONS (19)
  - METASTASES TO LUNG [None]
  - OVARIAN ADENOMA [None]
  - INSOMNIA [None]
  - VOMITING [None]
  - FOLLICULITIS [None]
  - NAUSEA [None]
  - BREAST CANCER STAGE IV [None]
  - LYMPHADENOPATHY [None]
  - ARTHRALGIA [None]
  - RASH [None]
  - UPPER RESPIRATORY TRACT INFECTION [None]
  - HEADACHE [None]
  - PULMONARY EMBOLISM [None]
  - URINARY TRACT INFECTION [None]
  - STOMATITIS [None]
  - COUGH [None]
  - DISCOMFORT [None]
  - PAIN [None]
  - RECURRENT CANCER [None]
